FAERS Safety Report 13740894 (Version 4)
Quarter: 2017Q3

REPORT INFORMATION
  Report Type: Spontaneous
  Country: US (occurrence: US)
  Receive Date: 20170711
  Receipt Date: 20170727
  Transmission Date: 20171127
  Serious: No
  Sender: FDA-Public Use
  Company Number: US-ASTRAZENECA-2017SE70781

PATIENT
  Age: 705 Month
  Sex: Male
  Weight: 122.5 kg

DRUGS (4)
  1. BYDUREON [Suspect]
     Active Substance: EXENATIDE
     Indication: BLOOD GLUCOSE ABNORMAL
     Dosage: PEN
     Route: 065
     Dates: start: 201706
  2. BYDUREON [Suspect]
     Active Substance: EXENATIDE
     Indication: WEIGHT LOSS POOR
     Dosage: PEN
     Route: 065
     Dates: start: 201706
  3. BYDUREON [Suspect]
     Active Substance: EXENATIDE
     Indication: WEIGHT LOSS POOR
     Dosage: SDT
     Route: 065
     Dates: start: 201705, end: 201706
  4. BYDUREON [Suspect]
     Active Substance: EXENATIDE
     Indication: BLOOD GLUCOSE ABNORMAL
     Dosage: SDT
     Route: 065
     Dates: start: 201705, end: 201706

REACTIONS (6)
  - Injection site extravasation [Unknown]
  - Underdose [Unknown]
  - Arthritis [Unknown]
  - Injection site haemorrhage [Unknown]
  - Wrong technique in product usage process [Unknown]
  - Device leakage [Unknown]

NARRATIVE: CASE EVENT DATE: 201706
